FAERS Safety Report 8021047-2 (Version None)
Quarter: 2011Q4

REPORT INFORMATION
  Report Type: 
  Country: None (occurrence: None)
  Receive Date: 20111229
  Receipt Date: 20111223
  Transmission Date: 20120403
  Serious: Yes (Congenital Anomaly, Other)
  Sender: FDA-Public Use
  Company Number: GER/GER/11/0022453

PATIENT
  Sex: Female
  Weight: 2.32 kg

DRUGS (2)
  1. RISPERIDONE [Suspect]
     Indication: PRODUCT USED FOR UNKNOWN INDICATION
     Dosage: 4 MG, TRANSPLACENTAL
     Route: 064
     Dates: start: 20100211, end: 20100829
  2. ABILIFY [Concomitant]

REACTIONS (8)
  - PREMATURE BABY [None]
  - MATERNAL DRUGS AFFECTING FOETUS [None]
  - BREECH PRESENTATION [None]
  - POLYCYTHAEMIA [None]
  - TRANSIENT TACHYPNOEA OF THE NEWBORN [None]
  - CONGENITAL HYDRONEPHROSIS [None]
  - CAESAREAN SECTION [None]
  - URETERIC STENOSIS [None]
